FAERS Safety Report 16327942 (Version 1)
Quarter: 2019Q2

REPORT INFORMATION
  Report Type: Spontaneous
  Country: FR (occurrence: FR)
  Receive Date: 20190518
  Receipt Date: 20190518
  Transmission Date: 20190711
  Serious: Yes (Hospitalization)
  Sender: FDA-Public Use
  Company Number: FR-AUROBINDO-AUR-APL-2019-025793

PATIENT

DRUGS (5)
  1. CONTRAMAL [Suspect]
     Active Substance: TRAMADOL HYDROCHLORIDE
     Indication: PAIN
     Dosage: UNK
     Route: 042
     Dates: start: 20150910, end: 20150912
  2. CELLCEPT [Suspect]
     Active Substance: MYCOPHENOLATE MOFETIL\MYCOPHENOLATE MOFETIL HYDROCHLORIDE
     Indication: TRANSPLANT
     Dosage: 2 GRAM, ONCE A DAY
     Route: 048
     Dates: start: 20150910, end: 20150925
  3. ROPIVACAINE KABI [Suspect]
     Active Substance: ROPIVACAINE
     Indication: PAIN
     Dosage: 3 MILLIGRAM
     Route: 041
     Dates: end: 20150913
  4. SUFENTA [Suspect]
     Active Substance: SUFENTANIL CITRATE
     Indication: SEDATION
     Dosage: UNK
     Route: 042
     Dates: start: 20150910, end: 20150913
  5. TRAMADOL. [Suspect]
     Active Substance: TRAMADOL
     Indication: PAIN
     Dosage: 50 MILLIGRAM
     Route: 048
     Dates: end: 20150910

REACTIONS (1)
  - Gastrointestinal motility disorder [Recovered/Resolved]

NARRATIVE: CASE EVENT DATE: 201509
